FAERS Safety Report 9729800 (Version 1)
Quarter: 2013Q4

REPORT INFORMATION
  Report Type: Spontaneous
  Country: US (occurrence: US)
  Receive Date: 20131204
  Receipt Date: 20131204
  Transmission Date: 20140711
  Serious: No
  Sender: FDA-Public Use
  Company Number: US-GILEAD-2009-0022504

PATIENT
  Sex: Male
  Weight: 90.26 kg

DRUGS (16)
  1. LETAIRIS [Suspect]
     Indication: PULMONARY ARTERIAL HYPERTENSION
     Route: 048
     Dates: start: 20090507
  2. REVATIO [Concomitant]
  3. LASIX [Concomitant]
  4. COREG [Concomitant]
  5. DIGOXIN [Concomitant]
  6. DETROL [Concomitant]
  7. FOLIC ACID [Concomitant]
  8. HAWTHORN PHYTO [Concomitant]
  9. UROXATRAL [Concomitant]
  10. ADVAIR [Concomitant]
  11. POTASSIUM [Concomitant]
  12. MAGNESIUM OXIDE [Concomitant]
  13. SPIRIVA [Concomitant]
  14. CARNITINE [Concomitant]
  15. DITROPAN [Concomitant]
  16. XOPENEX [Concomitant]

REACTIONS (2)
  - Oedema peripheral [Unknown]
  - Nasal congestion [Unknown]
